FAERS Safety Report 4663786-7 (Version None)
Quarter: 2005Q2

REPORT INFORMATION
  Report Type: 
  Country: None (occurrence: None)
  Receive Date: 20050516
  Receipt Date: 20050504
  Transmission Date: 20051028
  Serious: Yes (Hospitalization)
  Sender: FDA-Public Use
  Company Number: 2005071109

PATIENT
  Age: 77 Year
  Sex: Female
  Weight: 86.1834 kg

DRUGS (5)
  1. BEXTRA [Suspect]
     Indication: OSTEOARTHRITIS
     Dosage: 20 MG (20 MG, 1 IN 1 D), ORAL
     Route: 048
     Dates: start: 20041101, end: 20050404
  2. TOCOPHEROL (TOCOPEROL) [Concomitant]
  3. MULTIVITAMINS (ASCORBIC ACID, ERGOCALCIFEROL, FOLIC ACID, NICOTINAMIDE [Concomitant]
  4. ANTIHYPERTENSIVE (ANTIHYPERTENSIVES) [Concomitant]
  5. ATORVASTATIN CALCIUM [Concomitant]

REACTIONS (1)
  - POSTOPERATIVE THROMBOSIS [None]
